FAERS Safety Report 7642890-5 (Version None)
Quarter: 2011Q3

REPORT INFORMATION
  Report Type: 
  Country: None (occurrence: None)
  Receive Date: 20110728
  Receipt Date: 20110718
  Transmission Date: 20111222
  Serious: Yes (Disabling, Other)
  Sender: FDA-Public Use
  Company Number: PHEH2007US03407

PATIENT
  Sex: Female
  Weight: 74.83 kg

DRUGS (40)
  1. ZOMETA [Suspect]
  2. DIOVAN [Concomitant]
     Dosage: 160 MG, BID
  3. CALCIUM CARBONATE [Concomitant]
     Dosage: 400 MG, QID
  4. PREVIDENT [Concomitant]
  5. BACTRIM [Concomitant]
     Dosage: 80 MG, BIW
  6. LIPITOR [Concomitant]
  7. METOPROLOL TARTRATE [Concomitant]
     Dosage: 100 MG, BID
  8. EPINEPHRINE [Concomitant]
  9. AREDIA [Suspect]
  10. KAYEXALATE [Concomitant]
     Dosage: UNK
  11. OMEPRAZOLE [Concomitant]
     Dosage: 20 MG, QD
  12. PEN-VEE K [Concomitant]
  13. PRILOCAINE HYDROCHLORIDE [Concomitant]
  14. MINOXIDIL [Concomitant]
  15. MIRALAX [Concomitant]
  16. MYCELEX [Concomitant]
     Dosage: UNK
  17. SODIUM POLYSTYRENE SULFONATE [Concomitant]
     Dosage: 60 MG, 4 TABS, QD
  18. AUGMENTIN '125' [Concomitant]
     Dosage: UNK
  19. RENAGEL [Concomitant]
     Dosage: 800 MG, UNK
  20. THALIDOMIDE [Concomitant]
     Dosage: 50 MG, QID
  21. OXYCONTIN [Concomitant]
     Dosage: 10 MG, UNK
  22. AMOXICILLIN [Concomitant]
  23. TOPRAL XL [Concomitant]
     Dosage: 50 MG, UNK
  24. LORTAB [Concomitant]
     Dosage: 7.5 MG, PRN
  25. CELEXA [Concomitant]
  26. MAGNESIUM [Concomitant]
  27. SENSIPAR [Concomitant]
     Dosage: 30 MG, QOD
  28. NORVASC [Concomitant]
     Dosage: 10 MG, BID
  29. CHEMOTHERAPEUTICS NOS [Concomitant]
  30. CELLCEPT [Concomitant]
  31. METHADONE HYDROCHLORIDE [Concomitant]
  32. LYRICA [Concomitant]
  33. ROCALTROL [Concomitant]
  34. LIDOCAINE [Concomitant]
  35. STEROIDS NOS [Concomitant]
     Dosage: PULSE THERAPY
  36. NEPHRO-VITE [Concomitant]
  37. PREDNISONE [Concomitant]
  38. PROGRAF [Concomitant]
     Dosage: 1 MG, QID
  39. METOCLOPRAMIDE [Concomitant]
     Dosage: 10 MG, TID
  40. CHLORHEXIDINE GLUCONATE [Concomitant]

REACTIONS (51)
  - PAIN [None]
  - DECREASED INTEREST [None]
  - ORAL CAVITY FISTULA [None]
  - GASTRITIS [None]
  - ARTERIOVENOUS FISTULA THROMBOSIS [None]
  - BUNION [None]
  - HAEMATEMESIS [None]
  - BARRETT'S OESOPHAGUS [None]
  - HIATUS HERNIA [None]
  - POST HERPETIC NEURALGIA [None]
  - DIARRHOEA [None]
  - DYSPEPSIA [None]
  - CELLULITIS [None]
  - ACUTE LEUKAEMIA [None]
  - OSTEONECROSIS OF JAW [None]
  - ANXIETY [None]
  - OEDEMA [None]
  - ARTERIOVENOUS FISTULA SITE COMPLICATION [None]
  - GENERAL PHYSICAL HEALTH DETERIORATION [None]
  - COLONIC POLYP [None]
  - ABDOMINAL PAIN UPPER [None]
  - ULCER [None]
  - GINGIVAL RECESSION [None]
  - DENTAL CARIES [None]
  - BONE DISORDER [None]
  - DIVERTICULUM [None]
  - HAEMORRHOIDS [None]
  - AZOTAEMIA [None]
  - TOOTH ABSCESS [None]
  - BLOOD CALCIUM DECREASED [None]
  - GASTRITIS ATROPHIC [None]
  - BLOOD GLUCOSE DECREASED [None]
  - CHANGE OF BOWEL HABIT [None]
  - EXCORIATION [None]
  - BACK PAIN [None]
  - INFLUENZA LIKE ILLNESS [None]
  - MELANOCYTIC NAEVUS [None]
  - OSTEITIS [None]
  - EROSIVE OESOPHAGITIS [None]
  - COUGH [None]
  - ARTERIOVENOUS GRAFT ANEURYSM [None]
  - RENAL FAILURE ACUTE [None]
  - FOOT DEFORMITY [None]
  - IMPAIRED GASTRIC EMPTYING [None]
  - NEOPLASM MALIGNANT [None]
  - BLOOD POTASSIUM INCREASED [None]
  - JAW FRACTURE [None]
  - ANAEMIA [None]
  - HEADACHE [None]
  - CHOLECYSTITIS [None]
  - GALLBLADDER CHOLESTEROLOSIS [None]
